FAERS Safety Report 13181828 (Version 1)
Quarter: 2017Q1

REPORT INFORMATION
  Report Type: Spontaneous
  Country: US (occurrence: US)
  Receive Date: 20170202
  Receipt Date: 20170202
  Transmission Date: 20170428
  Serious: No
  Sender: FDA-Public Use
  Company Number: US-IMPAX LABORATORIES, INC-2016-IPXL-01459

PATIENT
  Age: 74 Year
  Sex: Male
  Weight: 100 kg

DRUGS (5)
  1. SINEMET [Concomitant]
     Active Substance: CARBIDOPA\LEVODOPA
     Indication: PARKINSON^S DISEASE
     Dosage: 25/100 MG, UNK
     Route: 065
  2. PRILOSEC [Concomitant]
     Active Substance: OMEPRAZOLE MAGNESIUM
     Indication: DYSPEPSIA
     Dosage: UNK
     Route: 065
  3. RYTARY [Suspect]
     Active Substance: CARBIDOPA\LEVODOPA
     Indication: PARKINSON^S DISEASE
     Dosage: (48.75/195 MG); 3 CAPSULES, AT 5 AM IN MORNING
     Route: 048
     Dates: start: 20161014
  4. ISRADIPINE. [Concomitant]
     Active Substance: ISRADIPINE
     Indication: HYPERTENSION
     Dosage: 5 MG, UNK
     Route: 065
     Dates: start: 2014
  5. ISRADIPINE. [Concomitant]
     Active Substance: ISRADIPINE
     Indication: PARKINSON^S DISEASE

REACTIONS (2)
  - Drug effect decreased [Not Recovered/Not Resolved]
  - Tremor [Not Recovered/Not Resolved]

NARRATIVE: CASE EVENT DATE: 201610
